FAERS Safety Report 18395916 (Version 1)
Quarter: 2020Q4

REPORT INFORMATION
  Report Type: Spontaneous
  Country: US (occurrence: US)
  Receive Date: 20201018
  Receipt Date: 20201018
  Transmission Date: 20210114
  Serious: Yes (Death, Hospitalization, Other)
  Sender: FDA-Public Use
  Company Number: US-GILEAD-2020-0499404

PATIENT
  Age: 73 Year
  Sex: Male
  Weight: 109 kg

DRUGS (26)
  1. CLINIMIX E [Concomitant]
     Active Substance: ALANINE\AMINO ACIDS\ARGININE\CALCIUM CHLORIDE\DEXTROSE\GLYCINE\HISTIDINE\ISOLEUCINE\LEUCINE\LYSINE\MAGNESIUM CHLORIDE\METHIONINE\PHENYLALANINE\POTASSIUM PHOSPHATE, DIBASIC\PROLINE\PROLINE, DL-\SERINE\SODIUM ACETATE\SODIUM CHLORIDE\THREONINE\TRYPTOPHAN\TYROSINE\VALINE
  2. DULOXETINE. [Concomitant]
     Active Substance: DULOXETINE
  3. REMDESIVIR. [Suspect]
     Active Substance: REMDESIVIR
     Indication: COVID-19
     Dosage: 200 MG, ONCE
     Route: 042
     Dates: start: 20200805, end: 20200805
  4. AZITHROMYCIN ANHYDROUS. [Concomitant]
     Active Substance: AZITHROMYCIN ANHYDROUS
  5. FUROSEMIDE. [Concomitant]
     Active Substance: FUROSEMIDE
  6. METOPROLOL SUCCINATE. [Concomitant]
     Active Substance: METOPROLOL SUCCINATE
  7. PREGABALIN. [Concomitant]
     Active Substance: PREGABALIN
  8. CHLORHEXIDINE [Concomitant]
     Active Substance: CHLORHEXIDINE
  9. PIPERACILLIN AND TAZOBACTAM [Concomitant]
     Active Substance: PIPERACILLIN SODIUM\TAZOBACTAM SODIUM
  10. PRAVASTATIN. [Concomitant]
     Active Substance: PRAVASTATIN
  11. ALBUTEROL [SALBUTAMOL] [Concomitant]
     Active Substance: ALBUTEROL
  12. ASPIRIN (E.C.) [Concomitant]
     Active Substance: ASPIRIN
  13. CEFTRIAXONE. [Concomitant]
     Active Substance: CEFTRIAXONE
  14. SMOFLIPID [Concomitant]
     Active Substance: FISH OIL\MEDIUM-CHAIN TRIGLYCERIDES\OLIVE OIL\SOYBEAN OIL
  15. MELATONIN [Concomitant]
     Active Substance: MELATONIN
  16. MUPIROCIN. [Concomitant]
     Active Substance: MUPIROCIN
  17. TELMISARTAN. [Concomitant]
     Active Substance: TELMISARTAN
  18. TRAZODONE [Concomitant]
     Active Substance: TRAZODONE HYDROCHLORIDE
  19. CYANOCOBALAMIN. [Concomitant]
     Active Substance: CYANOCOBALAMIN
  20. DEXAMETHASONE. [Concomitant]
     Active Substance: DEXAMETHASONE
  21. DILTIAZEM. [Concomitant]
     Active Substance: DILTIAZEM
  22. INSULIN REGULAR [INSULIN BOVINE] [Concomitant]
     Active Substance: INSULIN BEEF
  23. REMDESIVIR. [Suspect]
     Active Substance: REMDESIVIR
     Dosage: 100 MG, QD
     Route: 042
     Dates: start: 20200806, end: 20200809
  24. APIXABAN [Concomitant]
     Active Substance: APIXABAN
  25. ACETAMINOPHEN. [Concomitant]
     Active Substance: ACETAMINOPHEN
  26. VANCOMYCIN [Concomitant]
     Active Substance: VANCOMYCIN

REACTIONS (1)
  - Respiratory failure [Fatal]

NARRATIVE: CASE EVENT DATE: 20200902
